FAERS Safety Report 10744260 (Version 2)
Quarter: 2015Q1

REPORT INFORMATION
  Report Type: Spontaneous
  Country: PL (occurrence: PL)
  Receive Date: 20150128
  Receipt Date: 20150207
  Transmission Date: 20150721
  Serious: Yes (Death, Other)
  Sender: FDA-Public Use
  Company Number: PL-ROCHE-1524126

PATIENT
  Age: 46 Year
  Sex: Female

DRUGS (2)
  1. CYCLOPHOSPHAMIDE. [Suspect]
     Active Substance: CYCLOPHOSPHAMIDE
     Indication: OVARIAN CANCER
     Dosage: 19 CYCLES
     Route: 065
     Dates: start: 20090224, end: 20100212
  2. AVASTIN [Suspect]
     Active Substance: BEVACIZUMAB
     Indication: OVARIAN CANCER
     Dosage: 19 CYCLES
     Route: 065
     Dates: start: 20090224, end: 20100212

REACTIONS (7)
  - Carbohydrate antigen 125 increased [Unknown]
  - Renal function test abnormal [Unknown]
  - Vomiting [Unknown]
  - General physical health deterioration [Unknown]
  - Blood creatinine increased [Unknown]
  - Neoplasm progression [Fatal]
  - Abdominal pain [Unknown]

NARRATIVE: CASE EVENT DATE: 20100317
